FAERS Safety Report 7325799-6 (Version None)
Quarter: 2011Q1

REPORT INFORMATION
  Report Type: 
  Country: None (occurrence: None)
  Receive Date: 20110301
  Receipt Date: 20110301
  Transmission Date: 20110831
  Serious: Yes (Death)
  Sender: FDA-Public Use
  Company Number: None

PATIENT
  Sex: Female
  Weight: 61.2356 kg

DRUGS (1)
  1. TRIAD STERILE ALCOHOL WIPES [Suspect]
     Indication: INFECTION PROPHYLAXIS
     Dates: start: 20101201

REACTIONS (2)
  - LUNG INFECTION [None]
  - PRODUCT CONTAMINATION [None]
